FAERS Safety Report 4609344-1 (Version None)
Quarter: 2005Q1

REPORT INFORMATION
  Report Type: 
  Country: None (occurrence: None)
  Receive Date: 20050314
  Receipt Date: 20050301
  Transmission Date: 20050727
  Serious: Yes (Hospitalization)
  Sender: FDA-Public Use
  Company Number: 2005013375

PATIENT
  Age: 81 Year
  Sex: Male

DRUGS (6)
  1. CELEBREX [Suspect]
     Indication: PAIN
     Dosage: ORAL
     Route: 048
     Dates: start: 20041016, end: 20041022
  2. TAMSULOSIN HYDROCHLORIDE (TAMSULOSIN HYDROCHLORIDE) [Suspect]
     Indication: ILL-DEFINED DISORDER
     Dosage: 0.4 MG (0.4 MG, 1 IN 1 D), ORAL
     Route: 048
     Dates: start: 20040923, end: 20041022
  3. ALFUZOSIN (ALFUZOSIN) [Suspect]
     Indication: ILL-DEFINED DISORDER
     Dosage: ORAL
     Route: 048
     Dates: end: 20041104
  4. FUROSEMIDE [Concomitant]
  5. ALLOPURINOL [Concomitant]
  6. VASERETIC [Concomitant]

REACTIONS (19)
  - AFFECT LABILITY [None]
  - ASPARTATE AMINOTRANSFERASE INCREASED [None]
  - C-REACTIVE PROTEIN INCREASED [None]
  - CATHETER SITE PHLEBITIS [None]
  - CONFUSIONAL STATE [None]
  - DRUG HYPERSENSITIVITY [None]
  - ECZEMA [None]
  - EOSINOPHIL COUNT INCREASED [None]
  - FACE OEDEMA [None]
  - GAMMA-GLUTAMYLTRANSFERASE INCREASED [None]
  - PHLEBITIS [None]
  - PHLEBITIS SUPERFICIAL [None]
  - PRURITUS [None]
  - PYREXIA [None]
  - RASH [None]
  - RASH MACULO-PAPULAR [None]
  - RASH PUSTULAR [None]
  - SKIN LESION [None]
  - STAPHYLOCOCCAL INFECTION [None]
